FAERS Safety Report 7670973-2 (Version None)
Quarter: 2011Q3

REPORT INFORMATION
  Report Type: 
  Country: None (occurrence: None)
  Receive Date: 20110809
  Receipt Date: 20110727
  Transmission Date: 20111222
  Serious: Yes (Hospitalization)
  Sender: FDA-Public Use
  Company Number: US-ELI_LILLY_AND_COMPANY-US201107007522

PATIENT
  Sex: Female

DRUGS (10)
  1. LISINOPRIL [Concomitant]
     Dosage: 5 MG, QD
  2. ZOCOR [Concomitant]
     Dosage: 20 MG, QD
  3. PACERONE [Concomitant]
     Dosage: 200 MG, QD
  4. LANTUS [Concomitant]
     Dosage: 50 U, QD
  5. NOVOLOG [Concomitant]
     Dosage: UNK
     Dates: start: 20110601, end: 20110629
  6. NITROSTAT [Concomitant]
     Indication: CHEST PAIN
     Dosage: 0.4 MG, PRN
  7. HUMALOG [Suspect]
     Indication: TYPE 2 DIABETES MELLITUS
     Dosage: 12 U, TID
     Dates: start: 20110630
  8. COREG [Concomitant]
     Dosage: 3.125 MG, BID
  9. ASPIRIN [Concomitant]
     Dosage: UNK, QD
  10. TRICOR [Concomitant]
     Dosage: 160 MG, QD

REACTIONS (1)
  - MYOCARDIAL INFARCTION [None]
